FAERS Safety Report 7412136-1 (Version None)
Quarter: 2011Q2

REPORT INFORMATION
  Report Type: 
  Country: None (occurrence: None)
  Receive Date: 20110413
  Receipt Date: 20110321
  Transmission Date: 20111010
  Serious: Yes (Hospitalization, Other)
  Sender: FDA-Public Use
  Company Number: US-BAYER-201039645NA

PATIENT
  Age: 39 Year
  Sex: Female
  Weight: 66 kg

DRUGS (3)
  1. YASMIN [Suspect]
     Indication: CONTRACEPTION
  2. YASMIN [Suspect]
     Indication: ACNE
     Route: 048
     Dates: start: 20050501, end: 20050701
  3. YASMIN [Suspect]
     Indication: PREMENSTRUAL SYNDROME

REACTIONS (2)
  - DEEP VEIN THROMBOSIS [None]
  - THROMBOSIS [None]
